FAERS Safety Report 8830514 (Version 1)
Quarter: 2012Q4

REPORT INFORMATION
  Report Type: Spontaneous
  Country: FR (occurrence: None)
  Receive Date: 20121004
  Receipt Date: 20121004
  Transmission Date: 20130627
  Serious: Yes (Hospitalization)
  Sender: FDA-Public Use
  Company Number: 1428622

PATIENT
  Age: 62 Year
  Sex: Female

DRUGS (5)
  1. OXALIPLATIN [Suspect]
     Route: 042
     Dates: start: 20120614, end: 20120614
  2. IRINOTECAN [Concomitant]
  3. ELVORIINE [Concomitant]
  4. FLUOROURACIL [Concomitant]
  5. ONDANSETRON [Concomitant]

REACTIONS (5)
  - Malaise [None]
  - Cyanosis [None]
  - Oxygen saturation decreased [None]
  - Tachycardia [None]
  - Hypotension [None]
